FAERS Safety Report 7345834-9 (Version None)
Quarter: 2011Q1

REPORT INFORMATION
  Report Type: 
  Country: None (occurrence: None)
  Receive Date: 20110311
  Receipt Date: 20091209
  Transmission Date: 20110831
  Serious: No
  Sender: FDA-Public Use
  Company Number: US-BIOGENIDEC-2009BI040564

PATIENT
  Sex: Female

DRUGS (3)
  1. TYSABRI [Suspect]
     Indication: MULTIPLE SCLEROSIS
     Route: 042
     Dates: start: 20090716
  2. AVONEX [Concomitant]
     Indication: MULTIPLE SCLEROSIS
     Route: 030
     Dates: start: 20060116
  3. AVONEX [Concomitant]
     Route: 030
     Dates: start: 20070205

REACTIONS (8)
  - SECONDARY PROGRESSIVE MULTIPLE SCLEROSIS [None]
  - COGNITIVE DISORDER [None]
  - DRUG EFFECT DECREASED [None]
  - MEMORY IMPAIRMENT [None]
  - HEADACHE [None]
  - SINUSITIS [None]
  - ASTHENIA [None]
  - STRESS [None]
